FAERS Safety Report 5387795-8 (Version None)
Quarter: 2007Q3

REPORT INFORMATION
  Report Type: 
  Country: None (occurrence: None)
  Receive Date: 20070716
  Receipt Date: 20070711
  Transmission Date: 20080115
  Serious: Yes (Other)
  Sender: FDA-Public Use
  Company Number: US-ASTRAZENECA-2007UW03932

PATIENT
  Age: 67 Year
  Sex: Female
  Weight: 54.4 kg

DRUGS (1)
  1. ARIMIDEX [Suspect]

REACTIONS (7)
  - ARTHROPATHY [None]
  - JOINT DISLOCATION [None]
  - JOINT SPRAIN [None]
  - KNEE OPERATION [None]
  - MUSCULAR WEAKNESS [None]
  - MYALGIA [None]
  - SURGERY [None]
